FAERS Safety Report 13652269 (Version 1)
Quarter: 2017Q2

REPORT INFORMATION
  Report Type: Spontaneous
  Country: US (occurrence: US)
  Receive Date: 20170614
  Receipt Date: 20170614
  Transmission Date: 20170830
  Serious: No
  Sender: FDA-Public Use
  Company Number: US-LEXICON PHARMACEUTICALS, INC-17-1606-00273

PATIENT
  Age: 65 Year
  Sex: Female

DRUGS (14)
  1. CULTURELLE DIGESTIVE HEALTH [Concomitant]
  2. KENALOG [Concomitant]
     Active Substance: TRIAMCINOLONE ACETONIDE
  3. SANDOSTATIN LAR DEPOT [Concomitant]
     Active Substance: OCTREOTIDE ACETATE
  4. AFINITOR [Concomitant]
     Active Substance: EVEROLIMUS
  5. CREON [Concomitant]
     Active Substance: PANCRELIPASE AMYLASE\PANCRELIPASE LIPASE\PANCRELIPASE PROTEASE
  6. LOMOTIL [Concomitant]
     Active Substance: ATROPINE SULFATE\DIPHENOXYLATE HYDROCHLORIDE
  7. LEVSIN [Concomitant]
     Active Substance: HYOSCYAMINE SULFATE
  8. POTASSIUM CHLORIDE ER [Concomitant]
     Active Substance: POTASSIUM CHLORIDE
  9. QUESTRAN [Concomitant]
     Active Substance: CHOLESTYRAMINE
  10. TELOTRISTAT ETHYL [Suspect]
     Active Substance: TELOTRISTAT ETHYL
     Indication: CARCINOID TUMOUR
     Route: 048
     Dates: start: 20170331
  11. IMODIUM [Concomitant]
     Active Substance: LOPERAMIDE HYDROCHLORIDE
  12. LISINOPRIL AND HYDROCHLOROTHIAZIDE [Concomitant]
     Active Substance: HYDROCHLOROTHIAZIDE\LISINOPRIL
  13. SIMETHICONE (DIMETHICONE) [Concomitant]
     Active Substance: DIMETHICONE
  14. MULTIVITAMIN ADULT [Concomitant]

REACTIONS (2)
  - Oedema peripheral [Not Recovered/Not Resolved]
  - Swelling face [Not Recovered/Not Resolved]

NARRATIVE: CASE EVENT DATE: 201705
